FAERS Safety Report 9640886 (Version 2)
Quarter: 2013Q4

REPORT INFORMATION
  Report Type: Spontaneous
  Country: US (occurrence: None)
  Receive Date: 20131021
  Receipt Date: 20131122
  Transmission Date: 20140711
  Serious: Yes (Other)
  Sender: FDA-Public Use
  Company Number: PI-09859

PATIENT
  Age: 22 Year
  Sex: Female

DRUGS (2)
  1. CHLORA PREP [Suspect]
     Indication: THERAPEUTIC SKIN CARE TOPICAL
     Route: 061
     Dates: start: 20130925
  2. CHLORA PREP [Suspect]
     Indication: PREOPERATIVE CARE
     Route: 061
     Dates: start: 20130925

REACTIONS (2)
  - Bacterial infection [None]
  - Culture positive [None]
